FAERS Safety Report 5358821-7 (Version None)
Quarter: 2007Q2

REPORT INFORMATION
  Report Type: 
  Country: None (occurrence: None)
  Receive Date: 20070530
  Receipt Date: 20070207
  Transmission Date: 20071010
  Serious: No
  Sender: FDA-Public Use
  Company Number: 2007PV029751

PATIENT
  Age: 33 Year
  Sex: Female

DRUGS (3)
  1. BYETTA [Suspect]
     Indication: DIABETES MELLITUS
     Dosage: 5 MCG;BID;SC
     Route: 058
     Dates: start: 20061101
  2. IRON [Concomitant]
  3. ORAL CONTRACEPTIVE NOS [Concomitant]

REACTIONS (3)
  - CONTUSION [None]
  - FATIGUE [None]
  - INJECTION SITE PAIN [None]
